FAERS Safety Report 8363292-2 (Version None)
Quarter: 2012Q2

REPORT INFORMATION
  Report Type: 
  Country: None (occurrence: None)
  Receive Date: 20120515
  Receipt Date: 20120515
  Transmission Date: 20120825
  Serious: Yes (Hospitalization)
  Sender: FDA-Public Use
  Company Number: None

PATIENT
  Age: 49 Year
  Sex: Male
  Weight: 94.6 kg

DRUGS (2)
  1. VANCOMYCIN [Suspect]
     Indication: INFECTION
     Dosage: 1750 MG BID IV
     Route: 042
     Dates: start: 20110520, end: 20110616
  2. BORTEZOMIB [Suspect]
     Indication: NEOPLASM MALIGNANT
     Dosage: 3.5 MG QWEEK IV
     Route: 042
     Dates: start: 20100813, end: 20110420

REACTIONS (3)
  - AGRANULOCYTOSIS [None]
  - NEUTROPHIL COUNT DECREASED [None]
  - LEUKOPENIA [None]
